FAERS Safety Report 7392620-X (Version None)
Quarter: 2011Q1

REPORT INFORMATION
  Report Type: 
  Country: None (occurrence: None)
  Receive Date: 20110330
  Receipt Date: 20110330
  Transmission Date: 20110831
  Serious: Yes (Hospitalization)
  Sender: FDA-Public Use
  Company Number: None

PATIENT
  Sex: Female
  Weight: 63.5 kg

DRUGS (2)
  1. TARCEVA [Suspect]
     Dosage: 2625MG
  2. GEMCITABINE HYDROCHLORIDE [Suspect]
     Dosage: 2880MG

REACTIONS (1)
  - NEUTROPHIL COUNT DECREASED [None]
